FAERS Safety Report 6549816-6 (Version None)
Quarter: 2010Q1

REPORT INFORMATION
  Report Type: 
  Country: None (occurrence: None)
  Receive Date: 20100125
  Receipt Date: 20100114
  Transmission Date: 20100710
  Serious: No
  Sender: FDA-Public Use
  Company Number: US-ASTRAZENECA-2010SE01797

PATIENT
  Age: 53 Year
  Sex: Female
  Weight: 77.1 kg

DRUGS (4)
  1. SEROQUEL XR [Suspect]
     Indication: HALLUCINATION
     Route: 048
     Dates: start: 20090801, end: 20091101
  2. PRISTIQ [Concomitant]
  3. GENERIC AMBIEN [Concomitant]
  4. TRAZODONE [Concomitant]

REACTIONS (5)
  - DYSPHAGIA [None]
  - HYPERTENSION [None]
  - LYMPHADENOPATHY [None]
  - MYALGIA [None]
  - WEIGHT INCREASED [None]
